FAERS Safety Report 8428047-9 (Version None)
Quarter: 2012Q2

REPORT INFORMATION
  Report Type: 
  Country: None (occurrence: None)
  Receive Date: 20120611
  Receipt Date: 20120601
  Transmission Date: 20120825
  Serious: Yes (Other)
  Sender: FDA-Public Use
  Company Number: CN-ASTRAZENECA-2012SE37067

PATIENT
  Age: 82 Year
  Sex: Male

DRUGS (5)
  1. ISOSORBIDE MONONITRATE [Concomitant]
     Route: 048
  2. CHINESE MEDICINE [Concomitant]
     Indication: CARDIAC FAILURE
     Route: 048
  3. METOPROLOL SUCCINATE [Suspect]
     Indication: CARDIAC FAILURE
     Route: 048
  4. ISOSORBIDE MONONITRATE [Concomitant]
     Indication: CARDIAC FAILURE
     Route: 048
  5. CHINESE MEDICINE [Concomitant]
     Route: 048

REACTIONS (4)
  - CEREBROVASCULAR INSUFFICIENCY [None]
  - CHEST DISCOMFORT [None]
  - HEART RATE DECREASED [None]
  - CARDIOVASCULAR INSUFFICIENCY [None]
